FAERS Safety Report 15357067 (Version 2)
Quarter: 2018Q3

REPORT INFORMATION
  Report Type: Spontaneous
  Country: JP (occurrence: JP)
  Receive Date: 20180906
  Receipt Date: 20180917
  Transmission Date: 20181010
  Serious: Yes (Death, Other)
  Sender: FDA-Public Use
  Company Number: JP-PFIZER INC-2018356400

PATIENT
  Age: 44 Year
  Sex: Female

DRUGS (11)
  1. OXALIPLATIN. [Suspect]
     Active Substance: OXALIPLATIN
     Dosage: UNK, CYCLIC (8?CYCLE)
     Dates: start: 201606
  2. CAPECITABINE. [Suspect]
     Active Substance: CAPECITABINE
     Indication: COLON CANCER METASTATIC
     Dosage: UNK, CYCLIC
     Dates: start: 201505
  3. FLUOROURACIL. [Suspect]
     Active Substance: FLUOROURACIL
     Indication: COLON CANCER METASTATIC
     Dosage: UNK, CYCLIC (7?CYCLE)
     Dates: start: 201601
  4. PANITUMUMAB [Suspect]
     Active Substance: PANITUMUMAB
     Indication: COLON CANCER METASTATIC
     Dosage: UNK, CYCLIC (7?CYCLE)
     Dates: start: 201601
  5. LEUCOVORIN. [Suspect]
     Active Substance: LEUCOVORIN
     Indication: COLON CANCER METASTATIC
     Dosage: UNK, CYCLIC
     Dates: start: 201505
  6. IRINOTECAN HCL [Suspect]
     Active Substance: IRINOTECAN HYDROCHLORIDE
     Indication: COLON CANCER METASTATIC
     Dosage: UNK , CYCLIC (7?CYCLE)
     Dates: start: 201601
  7. OXALIPLATIN. [Suspect]
     Active Substance: OXALIPLATIN
     Indication: COLON CANCER METASTATIC
     Dosage: UNK, CYCLIC
     Dates: start: 201505
  8. LEUCOVORIN. [Suspect]
     Active Substance: LEUCOVORIN
     Dosage: UNK, CYCLIC (8?CYCLE)
     Dates: start: 201606
  9. BEVACIZUMAB. [Suspect]
     Active Substance: BEVACIZUMAB
     Indication: COLON CANCER METASTATIC
     Dosage: UNK, CYCLIC (8?CYCLE)
     Dates: start: 201606
  10. FLUOROURACIL. [Suspect]
     Active Substance: FLUOROURACIL
     Dosage: UNK, CYCLIC (8?CYCLE)
     Dates: start: 201606
  11. LEUCOVORIN. [Suspect]
     Active Substance: LEUCOVORIN
     Dosage: UNK, CYCLIC (7?CYCLE)
     Dates: start: 201601

REACTIONS (2)
  - Reversible cerebral vasoconstriction syndrome [Unknown]
  - Posterior reversible encephalopathy syndrome [Unknown]

NARRATIVE: CASE EVENT DATE: 201609
